FAERS Safety Report 16933139 (Version 2)
Quarter: 2019Q4

REPORT INFORMATION
  Report Type: Spontaneous
  Country: US (occurrence: US)
  Receive Date: 20191018
  Receipt Date: 20191029
  Transmission Date: 20200122
  Serious: No
  Sender: FDA-Public Use
  Company Number: US-HORIZON-KRY-0868-2019

PATIENT
  Age: 60 Year
  Sex: Male

DRUGS (4)
  1. AZATHIOPRINE. [Concomitant]
     Active Substance: AZATHIOPRINE
     Dosage: 50MG ONCE A DAY
     Dates: end: 20191022
  2. INDOMETHACIN. [Concomitant]
     Active Substance: INDOMETHACIN
     Dosage: BID
  3. KRYSTEXXA [Suspect]
     Active Substance: PEGLOTICASE
     Indication: GOUT
     Dosage: EVERY 2 WEEKS
     Dates: start: 20190925
  4. MITIGARE [Concomitant]
     Active Substance: COLCHICINE
     Dosage: 1 CAPSULE BID
     Dates: end: 201909

REACTIONS (5)
  - Decreased appetite [Unknown]
  - Atrophy [Unknown]
  - Liver function test increased [Unknown]
  - Gout [Not Recovered/Not Resolved]
  - Weight decreased [Unknown]

NARRATIVE: CASE EVENT DATE: 201910
